FAERS Safety Report 4665386-1 (Version None)
Quarter: 2005Q2

REPORT INFORMATION
  Report Type: 
  Country: None (occurrence: None)
  Receive Date: 20050518
  Receipt Date: 20050518
  Transmission Date: 20051028
  Serious: No
  Sender: FDA-Public Use
  Company Number: None

PATIENT
  Age: 3 Year
  Sex: Male
  Weight: 14.1 kg

DRUGS (2)
  1. VERSED [Suspect]
     Indication: PREMEDICATION
     Dosage: 10-12 MG PO
     Route: 048
  2. VERSED [Suspect]
     Indication: SURGERY
     Dosage: 10-12 MG PO
     Route: 048

REACTIONS (5)
  - CHOKING [None]
  - INCORRECT DRUG DOSAGE FORM ADMINISTERED [None]
  - INCREASED UPPER AIRWAY SECRETION [None]
  - LETHARGY [None]
  - PROCEDURAL COMPLICATION [None]
